FAERS Safety Report 8898390 (Version 1)
Quarter: 2012Q4

REPORT INFORMATION
  Report Type: 
  Country: US (occurrence: US)
  Receive Date: 20121109
  Receipt Date: 20121109
  Transmission Date: 20130627
  Serious: No
  Sender: FDA-Public Use
  Company Number: US-009507513-1210USA014573

PATIENT
  Sex: Male

DRUGS (4)
  1. VICTRELIS [Suspect]
     Dosage: UNK
     Route: 048
     Dates: start: 20120913
  2. RIBAPAK [Suspect]
     Dosage: 600 mg, qam
  3. RIBAPAK [Suspect]
     Dosage: 400 mg, qpm
  4. PEGASYS [Suspect]

REACTIONS (4)
  - Pain [Unknown]
  - Stomatitis [Unknown]
  - Nausea [Unknown]
  - Irritability [Unknown]
